FAERS Safety Report 14851377 (Version 2)
Quarter: 2023Q2

REPORT INFORMATION
  Report Type: Report from Study
  Country: US (occurrence: US)
  Receive Date: 20180507
  Receipt Date: 20230517
  Transmission Date: 20230721
  Serious: No
  Sender: FDA-Public Use
  Company Number: US-AMGEN-USASL2018059956

PATIENT
  Age: 26 Year
  Sex: Female

DRUGS (1)
  1. ENBREL [Suspect]
     Active Substance: ETANERCEPT
     Indication: Psoriasis
     Dosage: 50 MILLIGRAM, QWK
     Route: 065
     Dates: start: 20180403

REACTIONS (5)
  - Injection site pruritus [Unknown]
  - Injection site induration [Unknown]
  - Injection site erythema [Unknown]
  - Off label use [Unknown]
  - Injection site reaction [Unknown]

NARRATIVE: CASE EVENT DATE: 20180401
